FAERS Safety Report 7000788-X (Version None)
Quarter: 2010Q3

REPORT INFORMATION
  Report Type: 
  Country: None (occurrence: None)
  Receive Date: 20100920
  Receipt Date: 20090817
  Transmission Date: 20110219
  Serious: No
  Sender: FDA-Public Use
  Company Number: US-ASTRAZENECA-2009SE08547

PATIENT
  Age: 18638 Day
  Sex: Female
  Weight: 87.5 kg

DRUGS (7)
  1. SEROQUEL XR [Suspect]
     Indication: MENTAL DISORDER
     Route: 048
     Dates: start: 20081201
  2. SEROQUEL XR [Suspect]
     Route: 048
     Dates: start: 20090701
  3. BUMICIDE [Concomitant]
  4. CLONAZEPAM [Concomitant]
  5. MORPHINE [Concomitant]
  6. OXYCODONE HCL [Concomitant]
  7. THYROID [Concomitant]

REACTIONS (1)
  - PAIN IN EXTREMITY [None]
